FAERS Safety Report 7386918-9 (Version None)
Quarter: 2011Q1

REPORT INFORMATION
  Report Type: 
  Country: None (occurrence: None)
  Receive Date: 20110331
  Receipt Date: 20110322
  Transmission Date: 20110831
  Serious: Yes (Disabling)
  Sender: FDA-Public Use
  Company Number: AU-ASTRAZENECA-2011SE16499

PATIENT
  Age: 62 Year
  Sex: Male

DRUGS (5)
  1. CRESTOR [Suspect]
     Route: 048
     Dates: start: 20100201, end: 20110207
  2. NEXIUM [Concomitant]
     Route: 048
     Dates: start: 20080101
  3. ASPIRIN [Concomitant]
     Route: 048
     Dates: start: 20080101
  4. ZANIDIP [Concomitant]
     Route: 048
     Dates: start: 20080101
  5. PERINDOPRIL ERBUMINE [Concomitant]
     Route: 048
     Dates: start: 20080101

REACTIONS (1)
  - MULTIFOCAL MOTOR NEUROPATHY [None]
